FAERS Safety Report 13990778 (Version 1)
Quarter: 2017Q3

REPORT INFORMATION
  Report Type: Spontaneous
  Country: US (occurrence: US)
  Receive Date: 20170920
  Receipt Date: 20170920
  Transmission Date: 20171128
  Serious: No
  Sender: FDA-Public Use
  Company Number: US-PFIZER INC-2017404622

PATIENT

DRUGS (1)
  1. EUCRISA [Suspect]
     Active Substance: CRISABOROLE
     Indication: CHEMICAL BURNS OF EYE
     Dosage: UNK , 2X/DAY

REACTIONS (2)
  - Product use in unapproved indication [Unknown]
  - Application site pain [Recovering/Resolving]
